FAERS Safety Report 5490898-0 (Version None)
Quarter: 2007Q4

REPORT INFORMATION
  Report Type: 
  Country: None (occurrence: None)
  Receive Date: 20071019
  Receipt Date: 20071005
  Transmission Date: 20080405
  Serious: Yes (Hospitalization)
  Sender: FDA-Public Use
  Company Number: GB-RANBAXY-2007RR-10549

PATIENT

DRUGS (2)
  1. GABAPENTIN BASICS B 600MG FILMTABLETTEN [Suspect]
  2. LIPITOR [Suspect]
     Dosage: 80 MG, QD
     Route: 048

REACTIONS (1)
  - HEPATIC FAILURE [None]
